FAERS Safety Report 8049882 (Version 6)
Quarter: 2013Q3

REPORT INFORMATION
  Report Type: Spontaneous
  Country: US (occurrence: US)
  Receive Date: 20110722
  Receipt Date: 20130902
  Transmission Date: 20140515
  Serious: Yes (Hospitalization, Congenital Anomaly, Other)
  Sender: FDA-Public Use
  Company Number: US-PFIZER INC-2011105759

PATIENT
  Sex: Male

DRUGS (13)
  1. ZOLOFT [Suspect]
     Dosage: UNK
     Route: 064
     Dates: start: 199706, end: 199804
  2. ZOLOFT [Suspect]
     Dosage: 50 MG
     Route: 064
     Dates: start: 1997
  3. ZOLOFT [Suspect]
     Dosage: 100 MG
     Route: 064
     Dates: start: 1997
  4. EFFEXOR [Suspect]
     Dosage: UNK
     Route: 064
  5. SERTRALINE HCL [Suspect]
     Dosage: UNK
     Route: 064
     Dates: start: 199706, end: 199804
  6. PRENATAL VITAMINS [Concomitant]
     Dosage: UNK
     Route: 064
  7. CYANOCOBALAMIN [Concomitant]
     Dosage: UNK
     Route: 064
  8. ASACOL [Concomitant]
     Dosage: UNK
     Route: 064
  9. VEETIDS [Concomitant]
     Dosage: UNK
     Route: 064
  10. TRIMOX [Concomitant]
     Dosage: UNK
     Route: 064
  11. CECLOR [Concomitant]
     Dosage: UNK
     Route: 064
  12. CHOLESTYRAMINE [Concomitant]
     Dosage: UNK
     Route: 064
  13. PROCHLORPERAZINE [Concomitant]
     Dosage: UNK
     Route: 064

REACTIONS (5)
  - Foetal exposure during pregnancy [Unknown]
  - Talipes [Recovered/Resolved]
  - Aortic valve incompetence [Unknown]
  - Syncope [Unknown]
  - Congenital anomaly [Unknown]
